FAERS Safety Report 17792252 (Version 1)
Quarter: 2020Q2

REPORT INFORMATION
  Report Type: Spontaneous
  Country: US (occurrence: US)
  Receive Date: 20200515
  Receipt Date: 20200515
  Transmission Date: 20200714
  Serious: Yes (Life-Threatening, Hospitalization, Other)
  Sender: FDA-Public Use
  Company Number: None

PATIENT
  Age: 54 Year
  Sex: Female
  Weight: 166.4 kg

DRUGS (7)
  1. SYNJARDY XR [Suspect]
     Active Substance: EMPAGLIFLOZIN\METFORMIN HYDROCHLORIDE
     Indication: TYPE 2 DIABETES MELLITUS
     Route: 048
     Dates: start: 20191116, end: 20200501
  2. SEMAGLUTIDE 0.25 MG SQ WEEKLY [Concomitant]
  3. ATORVASTATIN 40 MG DAILY [Concomitant]
  4. ASPIRIN 81 MG DAILY [Concomitant]
  5. METOPROLOL TARTRATE 25 MG BID [Concomitant]
  6. AMLODIPINE 10 MG DAILY [Concomitant]
  7. LOSARTAN/HCTZ 100/25 MG DAILY [Concomitant]

REACTIONS (8)
  - Anion gap increased [None]
  - Leukocytosis [None]
  - Hyperglycaemia [None]
  - Fournier^s gangrene [None]
  - Wound infection bacterial [None]
  - Streptococcus test positive [None]
  - Mass [None]
  - Blood creatinine increased [None]

NARRATIVE: CASE EVENT DATE: 20200501
